FAERS Safety Report 21402192 (Version 2)
Quarter: 2022Q4

REPORT INFORMATION
  Report Type: Spontaneous
  Country: IN (occurrence: IN)
  Receive Date: 20221003
  Receipt Date: 20221014
  Transmission Date: 20230112
  Serious: Yes (Hospitalization, Other)
  Sender: FDA-Public Use
  Company Number: IN-SUN PHARMACEUTICAL INDUSTRIES LTD-2022R1-357166

PATIENT
  Age: 72 Year
  Sex: Female

DRUGS (5)
  1. DOCETAXEL [Suspect]
     Active Substance: DOCETAXEL
     Indication: Pseudomyxoma peritonei
     Dosage: UNK (40 MG, 3 WEEKLY)
     Route: 033
  2. CISPLATIN [Suspect]
     Active Substance: CISPLATIN
     Indication: Pseudomyxoma peritonei
     Dosage: UNK (40 MG, 3 WEEKLY)
     Route: 033
  3. GIMERACIL\OTERACIL\TEGAFUR [Suspect]
     Active Substance: GIMERACIL\OTERACIL\TEGAFUR
     Dosage: UNK ((60 MG/M2) FROM DAYS 1 TO 14)
     Route: 048
  4. GIMERACIL\OTERACIL\TEGAFUR [Suspect]
     Active Substance: GIMERACIL\OTERACIL\TEGAFUR
     Indication: Pseudomyxoma peritonei
  5. GIMERACIL\OTERACIL\TEGAFUR [Suspect]
     Active Substance: GIMERACIL\OTERACIL\TEGAFUR

REACTIONS (1)
  - Disease progression [Unknown]
